FAERS Safety Report 6690321-4 (Version None)
Quarter: 2010Q2

REPORT INFORMATION
  Report Type: 
  Country: None (occurrence: None)
  Receive Date: 20100421
  Receipt Date: 20100415
  Transmission Date: 20101027
  Serious: Yes (Hospitalization)
  Sender: FDA-Public Use
  Company Number: PHHO2010US04736

PATIENT
  Age: 57 Year
  Sex: Male
  Weight: 93.3 kg

DRUGS (3)
  1. AFINITOR [Suspect]
     Indication: GLIOBLASTOMA
     Dosage: 10 MG, QW
     Route: 048
     Dates: start: 20100112
  2. TEMOZOLOMIDE [Concomitant]
     Indication: GLIOBLASTOMA
     Dosage: 70 MG, QD
     Route: 048
     Dates: start: 20000112
  3. RADIATION [Concomitant]
     Indication: GLIOBLASTOMA
     Dosage: UNK

REACTIONS (9)
  - ASTHENIA [None]
  - CHILLS [None]
  - ESCHERICHIA BACTERAEMIA [None]
  - HAEMOGLOBIN DECREASED [None]
  - HEADACHE [None]
  - HYPOTENSION [None]
  - PYREXIA [None]
  - SINUS TACHYCARDIA [None]
  - URINARY TRACT INFECTION [None]
